FAERS Safety Report 6182986-0 (Version None)
Quarter: 2009Q2

REPORT INFORMATION
  Report Type: 
  Country: None (occurrence: None)
  Receive Date: 20090507
  Receipt Date: 20090427
  Transmission Date: 20091009
  Serious: Yes (Hospitalization, Other)
  Sender: FDA-Public Use
  Company Number: PHHY2009BE16691

PATIENT
  Age: 40 Year
  Sex: Female

DRUGS (1)
  1. CARBAMAZEPINE [Suspect]
     Indication: HEADACHE
     Dosage: 200 MG/DAY
     Dates: start: 19920121

REACTIONS (15)
  - ALANINE AMINOTRANSFERASE INCREASED [None]
  - BLOOD ALKALINE PHOSPHATASE INCREASED [None]
  - BLOOD BILIRUBIN INCREASED [None]
  - CHILLS [None]
  - CHOLESTASIS [None]
  - CHROMATURIA [None]
  - HEPATIC STEATOSIS [None]
  - INFECTION [None]
  - INFLUENZA LIKE ILLNESS [None]
  - JAUNDICE [None]
  - PRURITUS [None]
  - PYREXIA [None]
  - RASH [None]
  - RASH ERYTHEMATOUS [None]
  - VANISHING BILE DUCT SYNDROME [None]
